FAERS Safety Report 21995799 (Version 3)
Quarter: 2023Q2

REPORT INFORMATION
  Report Type: Report from Study
  Country: US (occurrence: US)
  Receive Date: 20230215
  Receipt Date: 20230608
  Transmission Date: 20230721
  Serious: Yes (Other)
  Sender: FDA-Public Use
  Company Number: US-TAIHO-2022-001723

PATIENT
  Age: 66 Year
  Sex: Male

DRUGS (1)
  1. LONSURF [Suspect]
     Active Substance: TIPIRACIL HYDROCHLORIDE\TRIFLURIDINE
     Indication: Colon cancer
     Dosage: FORM STRENGTH: 15 AND 20 MG TABLETS; CURRENT CYCLE UNKNOWN
     Route: 048
     Dates: start: 20220929

REACTIONS (6)
  - Myocardial infarction [Not Recovered/Not Resolved]
  - Haemoptysis [Recovered/Resolved]
  - Cytopenia [Unknown]
  - Nausea [Unknown]
  - Dyspnoea [Recovering/Resolving]
  - Urticaria [Unknown]

NARRATIVE: CASE EVENT DATE: 20230101
